FAERS Safety Report 16986171 (Version 1)
Quarter: 2019Q4

REPORT INFORMATION
  Report Type: Spontaneous
  Country: US (occurrence: US)
  Receive Date: 20190917
  Receipt Date: 20190917
  Transmission Date: 20200122
  Serious: Yes (Other)
  Sender: FDA-Public Use
  Company Number: None

PATIENT
  Age: 69 Year
  Sex: Male
  Weight: 97.52 kg

DRUGS (14)
  1. BLU-U LIGHT (BLU-U BLUE LIGHT PHOTODYNAMIC THERAPY ILLUMINATOR) [Suspect]
     Active Substance: DEVICE
  2. ALLOPURINOL. [Concomitant]
     Active Substance: ALLOPURINOL
  3. ASPIRIN. [Concomitant]
     Active Substance: ASPIRIN
  4. CETIRIZINE [Concomitant]
     Active Substance: CETIRIZINE HYDROCHLORIDE
  5. ANUCORT HC [Concomitant]
  6. VIT D [Concomitant]
     Active Substance: VITAMIN D NOS
  7. TRAMADOL. [Concomitant]
     Active Substance: TRAMADOL
  8. CELEBREX [Concomitant]
     Active Substance: CELECOXIB
  9. LEVULAN KERASTICK [Suspect]
     Active Substance: AMINOLEVULINIC ACID HYDROCHLORIDE
     Indication: SQUAMOUS CELL CARCINOMA
     Route: 061
     Dates: start: 20190212, end: 20190212
  10. LEVULAN KERASTICK [Suspect]
     Active Substance: AMINOLEVULINIC ACID HYDROCHLORIDE
     Indication: ACTINIC KERATOSIS
     Route: 061
     Dates: start: 20190212, end: 20190212
  11. ZANTAC [Concomitant]
     Active Substance: RANITIDINE HYDROCHLORIDE
  12. LIDOCAINE. [Concomitant]
     Active Substance: LIDOCAINE
  13. MURO128 [Concomitant]
  14. MULTI-VIT [Concomitant]
     Active Substance: VITAMINS

REACTIONS (8)
  - Incorrect route of product administration [None]
  - Drug ineffective [None]
  - Dacryostenosis acquired [None]
  - Eye irritation [None]
  - Feeling hot [None]
  - Application site discomfort [None]
  - Eye pruritus [None]
  - Lacrimation increased [None]

NARRATIVE: CASE EVENT DATE: 20190202
